FAERS Safety Report 4666119-5 (Version None)
Quarter: 2005Q2

REPORT INFORMATION
  Report Type: 
  Country: None (occurrence: None)
  Receive Date: 20050519
  Receipt Date: 20050510
  Transmission Date: 20051028
  Serious: Yes (Hospitalization)
  Sender: FDA-Public Use
  Company Number: US-JNJFOC-20050503700

PATIENT
  Sex: Female

DRUGS (9)
  1. TYLENOL (CAPLET) [Suspect]
  2. TYLENOL (CAPLET) [Suspect]
     Indication: DRUG USE FOR UNKNOWN INDICATION
  3. REBIF [Suspect]
     Indication: MULTIPLE SCLEROSIS
  4. AGGRENOX [Suspect]
  5. AGGRENOX [Suspect]
     Indication: DRUG USE FOR UNKNOWN INDICATION
  6. AMBIEN [Concomitant]
  7. CELEXA [Concomitant]
  8. ALLEGRA [Concomitant]
  9. PREVACID [Concomitant]

REACTIONS (4)
  - GASTRITIS [None]
  - HEPATITIS [None]
  - INFLUENZA LIKE ILLNESS [None]
  - URINARY TRACT INFECTION [None]
